FAERS Safety Report 18970081 (Version 1)
Quarter: 2021Q1

REPORT INFORMATION
  Report Type: Spontaneous
  Country: US (occurrence: US)
  Receive Date: 20210304
  Receipt Date: 20210304
  Transmission Date: 20210420
  Serious: No
  Sender: FDA-Public Use
  Company Number: US-VERTEX PHARMACEUTICALS-2020-018930

PATIENT
  Sex: Female
  Weight: 119 kg

DRUGS (29)
  1. LOPRESSOR [Concomitant]
     Active Substance: METOPROLOL TARTRATE
  2. WELLBUTRIN [Concomitant]
     Active Substance: BUPROPION HYDROCHLORIDE
     Dosage: UNK
  3. PROTONIX [OMEPRAZOLE] [Concomitant]
     Active Substance: OMEPRAZOLE
     Dosage: UNK
  4. SODIUM CHLORIDE. [Concomitant]
     Active Substance: SODIUM CHLORIDE
  5. VANCOMYCIN HCL [Concomitant]
     Active Substance: VANCOMYCIN HYDROCHLORIDE
  6. XOPENEX [Concomitant]
     Active Substance: LEVALBUTEROL HYDROCHLORIDE
     Dosage: UNK
  7. ATROVENT [Concomitant]
     Active Substance: IPRATROPIUM BROMIDE
     Dosage: UNK
  8. ZENPEP [Concomitant]
     Active Substance: PANCRELIPASE AMYLASE\PANCRELIPASE LIPASE\PANCRELIPASE PROTEASE
  9. IPRATROPIUM BROMIDE. [Concomitant]
     Active Substance: IPRATROPIUM BROMIDE
  10. TRIKAFTA [Suspect]
     Active Substance: ELEXACAFTOR\IVACAFTOR\TEZACAFTOR
     Indication: CYSTIC FIBROSIS
     Dosage: 2 ORANGE TAB (100 MG ELEXA/ 50 MG TEZA/ 75 MG IVA) AM; 1 BLUE TAB (150MG IVA) PM
     Route: 048
     Dates: start: 201912
  11. LEVALBUTEROL TARTRATE HFA [Concomitant]
     Active Substance: LEVALBUTEROL TARTRATE
  12. LORAZEPAM. [Concomitant]
     Active Substance: LORAZEPAM
  13. BUDESONIDE. [Concomitant]
     Active Substance: BUDESONIDE
  14. TYLENOL [Concomitant]
     Active Substance: ACETAMINOPHEN
  15. VENLAFAXINE HCL [Concomitant]
     Active Substance: VENLAFAXINE HYDROCHLORIDE
  16. PULMOZYME [Concomitant]
     Active Substance: DORNASE ALFA
     Dosage: UNK
  17. AZITHROMYCIN ANHYDROUS. [Concomitant]
     Active Substance: AZITHROMYCIN ANHYDROUS
  18. SILDENAFIL. [Concomitant]
     Active Substance: SILDENAFIL
     Dosage: UNK
  19. VITAMIN D3 [Concomitant]
     Active Substance: CHOLECALCIFEROL
  20. ABILIFY [Concomitant]
     Active Substance: ARIPIPRAZOLE
     Dosage: UNK
  21. AFRIN [OXYMETAZOLINE] [Concomitant]
  22. EFFEXOR [Concomitant]
     Active Substance: VENLAFAXINE HYDROCHLORIDE
     Dosage: UNK
  23. METOPROLOL. [Concomitant]
     Active Substance: METOPROLOL
  24. FLUTICASONE PROPIONATE. [Concomitant]
     Active Substance: FLUTICASONE PROPIONATE
  25. IBUPROFEN. [Concomitant]
     Active Substance: IBUPROFEN
  26. DOCUSATE SODIUM. [Concomitant]
     Active Substance: DOCUSATE SODIUM
  27. SPIRONOLACTONE. [Concomitant]
     Active Substance: SPIRONOLACTONE
     Dosage: INCREASED
  28. LEVALBUTEROL HCL [Concomitant]
     Active Substance: LEVALBUTEROL HYDROCHLORIDE
  29. MEPHYTON [Concomitant]
     Active Substance: PHYTONADIONE

REACTIONS (11)
  - Anxiety [Not Recovered/Not Resolved]
  - Peripheral swelling [Unknown]
  - Weight increased [Unknown]
  - Depression [Not Recovered/Not Resolved]
  - Crying [Not Recovered/Not Resolved]
  - Arthralgia [Unknown]
  - Fluid retention [Unknown]
  - Joint swelling [Unknown]
  - Pain [Unknown]
  - Amnesia [Not Recovered/Not Resolved]
  - Lung disorder [Not Recovered/Not Resolved]

NARRATIVE: CASE EVENT DATE: 2020
